FAERS Safety Report 4377682-6 (Version None)
Quarter: 2004Q2

REPORT INFORMATION
  Report Type: 
  Country: None (occurrence: None)
  Receive Date: 20040608
  Receipt Date: 20040527
  Transmission Date: 20050107
  Serious: Yes (Life-Threatening, Hospitalization)
  Sender: FDA-Public Use
  Company Number: 2004214951JP

PATIENT
  Age: 70 Year
  Sex: Female
  Weight: 45 kg

DRUGS (3)
  1. FARMORUBICIN (EPIRUBICIN) POWDER, STERILE [Suspect]
     Indication: BREAST CANCER
     Dosage: 30 M G, QD, CYCLE 3, IV
     Route: 042
     Dates: start: 20040213, end: 20040415
  2. FLUOROURACIL [Suspect]
     Indication: BREAST CANCER
     Dosage: 500 MG, QD, CYCLE 3, IV DRIP
     Route: 041
     Dates: start: 20040213, end: 20040415
  3. CYCLOPHOSPHAMIDE [Suspect]
     Indication: BREAST CANCER
     Dosage: 100 MG, QD, CYCLE 3, ORAL
     Route: 048
     Dates: start: 20040213, end: 20040421

REACTIONS (12)
  - BLOOD CREATINE PHOSPHOKINASE INCREASED [None]
  - BLOOD LACTATE DEHYDROGENASE INCREASED [None]
  - DEHYDRATION [None]
  - DEPRESSED LEVEL OF CONSCIOUSNESS [None]
  - FALL [None]
  - HAEMATOMA [None]
  - HEAD INJURY [None]
  - HYPONATRAEMIA [None]
  - INAPPROPRIATE ANTIDIURETIC HORMONE SECRETION [None]
  - LOSS OF CONSCIOUSNESS [None]
  - MARKEDLY REDUCED DIETARY INTAKE [None]
  - SUBDURAL HAEMATOMA [None]
